FAERS Safety Report 5891611-5 (Version None)
Quarter: 2008Q3

REPORT INFORMATION
  Report Type: 
  Country: None (occurrence: None)
  Receive Date: 20080922
  Receipt Date: 20080910
  Transmission Date: 20090109
  Serious: Yes (Death)
  Sender: FDA-Public Use
  Company Number: US-PFIZER INC-2004070822

PATIENT
  Age: 55 Year

DRUGS (4)
  1. DOXEPIN HCL [Suspect]
     Indication: ILL-DEFINED DISORDER
     Route: 048
  2. ACETYLSALICYLIC ACID SRT [Suspect]
     Indication: ILL-DEFINED DISORDER
     Route: 048
  3. VENLAFAXINE HCL [Suspect]
     Indication: ILL-DEFINED DISORDER
     Route: 048
  4. ALL OTHER THERAPEUTIC PRODUCTS [Suspect]
     Indication: ILL-DEFINED DISORDER

REACTIONS (1)
  - COMPLETED SUICIDE [None]
